FAERS Safety Report 7824423-3 (Version None)
Quarter: 2011Q4

REPORT INFORMATION
  Report Type: 
  Country: None (occurrence: None)
  Receive Date: 20111019
  Receipt Date: 20111011
  Transmission Date: 20120403
  Serious: Yes (Other)
  Sender: FDA-Public Use
  Company Number: NL-AMGEN-NLDSP2011048482

PATIENT
  Age: 65 Year
  Sex: Female

DRUGS (6)
  1. ENALAPRIL MALEATE [Concomitant]
     Dosage: UNK
  2. HYDROCHLOROTHIAZIDE [Concomitant]
     Dosage: UNK
  3. ACETAMINOPHEN [Concomitant]
     Dosage: UNK
  4. ENBREL [Suspect]
     Indication: RHEUMATOID ARTHRITIS
     Dosage: 50 MG, WEEKLY
     Dates: start: 20100914, end: 20110101
  5. ENBREL [Suspect]
     Dosage: 50 MG, WEEKLY
     Dates: start: 20110919
  6. ARTHROTEC [Concomitant]
     Dosage: UNK

REACTIONS (3)
  - KNEE OPERATION [None]
  - UTERINE POLYP [None]
  - MALAISE [None]
